FAERS Safety Report 8891873 (Version 1)
Quarter: 2012Q4

REPORT INFORMATION
  Report Type: 
  Country: US (occurrence: US)
  Receive Date: 20121107
  Receipt Date: 20121107
  Transmission Date: 20130627
  Serious: No
  Sender: FDA-Public Use
  Company Number: US-AMGEN-USASP2011055841

PATIENT
  Age: 52 Year
  Sex: Male
  Weight: 195 kg

DRUGS (5)
  1. ENBREL [Suspect]
     Indication: PRODUCT USED FOR UNKNOWN INDICATION
     Dosage: 50 mg, qwk
  2. METHOTREXATE [Concomitant]
  3. VIAGRA [Concomitant]
  4. FOLIC ACID [Concomitant]
  5. FLOMAX                             /00889901/ [Concomitant]

REACTIONS (4)
  - Lethargy [Unknown]
  - Cough [Unknown]
  - Fatigue [Unknown]
  - Nausea [Unknown]
